FAERS Safety Report 15868334 (Version 4)
Quarter: 2020Q3

REPORT INFORMATION
  Report Type: Spontaneous
  Country: CA (occurrence: CA)
  Receive Date: 20190125
  Receipt Date: 20200820
  Transmission Date: 20201102
  Serious: Yes (Hospitalization)
  Sender: FDA-Public Use
  Company Number: CA-OTSUKA-2019_001915

PATIENT
  Age: 30 Year
  Sex: Male
  Weight: 134 kg

DRUGS (9)
  1. CLONAZEPAM. [Suspect]
     Active Substance: CLONAZEPAM
     Dosage: UNK
     Route: 048
  2. ABILIFY [Suspect]
     Active Substance: ARIPIPRAZOLE
     Indication: GENERALISED ANXIETY DISORDER
     Dosage: 250 MG, QD
     Route: 048
  3. CLONAZEPAM. [Suspect]
     Active Substance: CLONAZEPAM
     Dosage: 0.5 MG, UNK
     Route: 048
     Dates: start: 20180424
  4. ABILIFY [Suspect]
     Active Substance: ARIPIPRAZOLE
     Indication: MAJOR DEPRESSION
     Dosage: 2 MG, QD
     Route: 048
     Dates: start: 20180327
  5. CLOMIPRAMINE [Suspect]
     Active Substance: CLOMIPRAMINE
     Indication: GENERALISED ANXIETY DISORDER
     Dosage: 250 MG, QD
     Route: 048
     Dates: start: 20171213
  6. CLONAZEPAM. [Suspect]
     Active Substance: CLONAZEPAM
     Indication: GENERALISED ANXIETY DISORDER
     Dosage: 2 MG, UNK
     Route: 048
  7. CLONAZEPAM. [Suspect]
     Active Substance: CLONAZEPAM
     Dosage: 0.25 MG ( QRS)
     Route: 048
     Dates: start: 20180605
  8. CLOMIPRAMINE [Suspect]
     Active Substance: CLOMIPRAMINE
     Indication: MAJOR DEPRESSION
     Dosage: 200 MG, QD
     Route: 048
     Dates: start: 20171206
  9. CLONAZEPAM. [Suspect]
     Active Substance: CLONAZEPAM
     Indication: MAJOR DEPRESSION
     Dosage: 1 MG, QD
     Route: 048

REACTIONS (7)
  - Renal hypertension [Unknown]
  - Intentional product use issue [Unknown]
  - Product use in unapproved indication [Unknown]
  - Glomerular filtration rate decreased [Unknown]
  - Seizure [Unknown]
  - Overdose [Unknown]
  - Blood creatinine increased [Unknown]

NARRATIVE: CASE EVENT DATE: 20180608
